FAERS Safety Report 7473262-4 (Version None)
Quarter: 2011Q2

REPORT INFORMATION
  Report Type: 
  Country: None (occurrence: None)
  Receive Date: 20110511
  Receipt Date: 20110504
  Transmission Date: 20111010
  Serious: Yes (Other)
  Sender: FDA-Public Use
  Company Number: GB-TEVA-280652ISR

PATIENT
  Age: 29 Year
  Sex: Female
  Weight: 57.27 kg

DRUGS (1)
  1. CODEINE SULFATE [Suspect]
     Dates: start: 20110420

REACTIONS (1)
  - ANAPHYLACTIC REACTION [None]
